FAERS Safety Report 9216037 (Version 1)
Quarter: 2013Q2

REPORT INFORMATION
  Report Type: Spontaneous
  Country: PR (occurrence: None)
  Receive Date: 20130404
  Receipt Date: 20130404
  Transmission Date: 20140414
  Serious: Yes (Life-Threatening, Hospitalization)
  Sender: FDA-Public Use
  Company Number: FK201301008

PATIENT
  Age: 71 Year
  Sex: Male

DRUGS (3)
  1. METOPROLOL [Suspect]
     Indication: BLOOD PRESSURE ABNORMAL
  2. TRIMETHOPRIM SULFAMETHOXAZOLE [Suspect]
     Dosage: 2 DOSAGE FORMS, INITAIATED 5 DAYS PRIOR TO EVENT UNKNOWN
  3. LISINOPRIL (LISINOPRIL) [Concomitant]

REACTIONS (8)
  - Hyperkalaemia [None]
  - Unresponsive to stimuli [None]
  - Blood pressure decreased [None]
  - Electrocardiogram QRS complex prolonged [None]
  - Atrioventricular block complete [None]
  - Nodal rhythm [None]
  - Blood creatinine increased [None]
  - Haemodialysis [None]
